FAERS Safety Report 5192022-0 (Version None)
Quarter: 2006Q4

REPORT INFORMATION
  Report Type: 
  Country: None (occurrence: None)
  Receive Date: 20061220
  Receipt Date: 20061220
  Transmission Date: 20070319
  Serious: Yes (Hospitalization)
  Sender: FDA-Public Use
  Company Number: None

PATIENT
  Age: 53 Year
  Sex: Female
  Weight: 76.5 kg

DRUGS (10)
  1. ALPRAZOLAM [Suspect]
     Indication: PAIN
     Dosage: TOTAL 4MG DAILY PO CHRONIC
     Route: 048
  2. OXYCODONE AND ACETAMINOPHEN [Suspect]
     Indication: PAIN
     Dosage: 5/325 ONE DAILY PO  CHRONIC
     Route: 048
  3. NEXIUM [Concomitant]
  4. SYNTHROID [Concomitant]
  5. NADOLOL [Concomitant]
  6. EPIPEN [Concomitant]
  7. GLUCOPHAGE [Concomitant]
  8. ELAVIL [Concomitant]
  9. XANAX [Concomitant]
  10. FLEXERIL [Concomitant]

REACTIONS (5)
  - DEPRESSED LEVEL OF CONSCIOUSNESS [None]
  - DRUG ADMINISTRATION ERROR [None]
  - MENTAL STATUS CHANGES [None]
  - NO THERAPEUTIC RESPONSE [None]
  - OXYGEN SATURATION DECREASED [None]
